FAERS Safety Report 6838275-1 (Version None)
Quarter: 2010Q3

REPORT INFORMATION
  Report Type: 
  Country: None (occurrence: None)
  Receive Date: 20100713
  Receipt Date: 20070604
  Transmission Date: 20110219
  Serious: No
  Sender: FDA-Public Use
  Company Number: US-PFIZER INC-2007047180

PATIENT
  Sex: Female
  Weight: 72.727 kg

DRUGS (11)
  1. CHANTIX [Suspect]
     Indication: SMOKING CESSATION THERAPY
     Dates: start: 20070501
  2. MULTI-VITAMINS [Concomitant]
  3. XANAX [Concomitant]
  4. LEVOTHYROXINE SODIUM [Concomitant]
  5. ATENOLOL [Concomitant]
  6. LYRICA [Concomitant]
     Route: 048
  7. PROPOXYPHENE HCL AND ACETAMINOPHEN [Concomitant]
  8. LOVASTATIN [Concomitant]
  9. ZETIA [Concomitant]
  10. LISINOPRIL [Concomitant]
  11. PLAVIX [Concomitant]

REACTIONS (4)
  - CHILLS [None]
  - INSOMNIA [None]
  - MUSCLE TIGHTNESS [None]
  - THINKING ABNORMAL [None]
